FAERS Safety Report 5567987-5 (Version None)
Quarter: 2007Q4

REPORT INFORMATION
  Report Type: 
  Country: None (occurrence: None)
  Receive Date: 20071220
  Receipt Date: 20071210
  Transmission Date: 20080405
  Serious: Yes (Other)
  Sender: FDA-Public Use
  Company Number: ES-JNJFOC-20071202426

PATIENT
  Age: 50 Year
  Sex: Male

DRUGS (2)
  1. TAVANIC [Suspect]
     Indication: NASOPHARYNGITIS
     Route: 048
  2. FLUMIL [Concomitant]
     Indication: NASOPHARYNGITIS
     Route: 065

REACTIONS (5)
  - ARRHYTHMIA [None]
  - CHEST PAIN [None]
  - MALAISE [None]
  - MUSCLE SPASMS [None]
  - TENDONITIS [None]
